FAERS Safety Report 10541272 (Version 2)
Quarter: 2014Q4

REPORT INFORMATION
  Report Type: Spontaneous
  Country: US (occurrence: None)
  Receive Date: 20141010
  Receipt Date: 20141205
  Transmission Date: 20150529
  Serious: No
  Sender: FDA-Public Use
  Company Number: 163-POMAL-14061412

PATIENT
  Sex: Female

DRUGS (1)
  1. POMALYST [Suspect]
     Active Substance: POMALIDOMIDE
     Indication: PLASMA CELL MYELOMA
     Dosage: 2.25 MG, 21 IN 28 D
     Route: 048
     Dates: start: 201312

REACTIONS (4)
  - Ageusia [None]
  - Dizziness [None]
  - Balance disorder [None]
  - Fatigue [None]
